FAERS Safety Report 18270969 (Version 2)
Quarter: 2020Q4

REPORT INFORMATION
  Report Type: Spontaneous
  Country: US (occurrence: US)
  Receive Date: 20200916
  Receipt Date: 20201109
  Transmission Date: 20210113
  Serious: No
  Sender: FDA-Public Use
  Company Number: US-ASTRAZENECA-2020SF14588

PATIENT
  Age: 608 Month
  Sex: Female

DRUGS (1)
  1. BYDUREON BCISE [Suspect]
     Active Substance: EXENATIDE
     Indication: TYPE 2 DIABETES MELLITUS
     Dosage: UNKNOWN, ONCE A WEEK
     Route: 065

REACTIONS (6)
  - Wrong technique in device usage process [Unknown]
  - Injection site extravasation [Unknown]
  - Device malfunction [Unknown]
  - Injection site pain [Unknown]
  - Injection site haemorrhage [Unknown]
  - Drug dose omission by device [Unknown]

NARRATIVE: CASE EVENT DATE: 202007
